FAERS Safety Report 14339392 (Version 1)
Quarter: 2017Q4

REPORT INFORMATION
  Report Type: Spontaneous
  Country: GB (occurrence: GB)
  Receive Date: 20171230
  Receipt Date: 20171230
  Transmission Date: 20180321
  Serious: Yes (Disabling)
  Sender: FDA-Public Use
  Company Number: GB-AUROBINDO-AUR-APL-2017-48002

PATIENT
  Age: 57 Year
  Sex: Female

DRUGS (3)
  1. COSMOCOL [Concomitant]
     Dosage: ()
     Dates: start: 2011
  2. GABAPENTIN. [Suspect]
     Active Substance: GABAPENTIN
     Indication: NEUROPATHY PERIPHERAL
     Dosage: 2700 MG, UNK
     Route: 048
     Dates: start: 201612
  3. DIHYDROCODEINE [Concomitant]
     Active Substance: DIHYDROCODEINE
     Route: 048
     Dates: start: 2015

REACTIONS (1)
  - Pneumonia [Recovered/Resolved]

NARRATIVE: CASE EVENT DATE: 20170419
